APPROVED DRUG PRODUCT: DISOPYRAMIDE PHOSPHATE
Active Ingredient: DISOPYRAMIDE PHOSPHATE
Strength: EQ 150MG BASE
Dosage Form/Route: CAPSULE;ORAL
Application: A070173 | Product #002 | TE Code: AB
Applicant: DR REDDYS LABORATORIES SA
Approved: May 31, 1985 | RLD: No | RS: No | Type: RX